FAERS Safety Report 9969140 (Version 1)
Quarter: 2014Q1

REPORT INFORMATION
  Report Type: Spontaneous
  Country: US (occurrence: US)
  Receive Date: 20140306
  Receipt Date: 20140306
  Transmission Date: 20141002
  Serious: No
  Sender: FDA-Public Use
  Company Number: US-ABBVIE-13P-163-1142275-00

PATIENT
  Age: 51 Year
  Sex: Female
  Weight: 113.5 kg

DRUGS (6)
  1. HUMIRA [Suspect]
     Indication: PSORIATIC ARTHROPATHY
     Dates: start: 2011, end: 2012
  2. NOVALOG [Concomitant]
     Indication: DIABETES MELLITUS
  3. TRAMADOL [Concomitant]
     Indication: PAIN
  4. MELOXICAM [Concomitant]
     Indication: PAIN
  5. BENAZEPRIL [Concomitant]
     Indication: HYPERTENSION
  6. SIMVASTATIN [Concomitant]
     Indication: BLOOD CHOLESTEROL INCREASED

REACTIONS (1)
  - Psoriatic arthropathy [Not Recovered/Not Resolved]
